FAERS Safety Report 24742535 (Version 1)
Quarter: 2024Q4

REPORT INFORMATION
  Report Type: Spontaneous
  Country: US (occurrence: US)
  Receive Date: 20241217
  Receipt Date: 20241217
  Transmission Date: 20250115
  Serious: No
  Sender: SUNSHINE LAKE PHARMA
  Company Number: US-Sunshine Lake Pharma Co, Ltd.-2167279

PATIENT
  Sex: Male

DRUGS (2)
  1. FEBUXOSTAT [Suspect]
     Active Substance: FEBUXOSTAT
     Indication: Gout
  2. steroids prednisone [Concomitant]

REACTIONS (1)
  - Gout [Recovered/Resolved]
